FAERS Safety Report 25250956 (Version 2)
Quarter: 2025Q2

REPORT INFORMATION
  Report Type: Spontaneous
  Country: US (occurrence: US)
  Receive Date: 20250429
  Receipt Date: 20250513
  Transmission Date: 20250716
  Serious: Yes (Death, Life-Threatening, Other)
  Sender: CIPLA
  Company Number: US-CIPLA LTD.-2025US04957

PATIENT

DRUGS (1)
  1. ATORVASTATIN [Suspect]
     Active Substance: ATORVASTATIN
     Indication: Product used for unknown indication
     Route: 065

REACTIONS (4)
  - Cardiac arrest [Fatal]
  - Arrhythmia [Unknown]
  - Acute kidney injury [Unknown]
  - Rhabdomyolysis [Unknown]
